FAERS Safety Report 25614720 (Version 1)
Quarter: 2025Q3

REPORT INFORMATION
  Report Type: Spontaneous
  Country: US (occurrence: US)
  Receive Date: 20250729
  Receipt Date: 20250729
  Transmission Date: 20251021
  Serious: Yes (Hospitalization)
  Sender: SPECGX
  Company Number: US-SPECGX-T202501269

PATIENT
  Sex: Male

DRUGS (4)
  1. OXYCODONE [Suspect]
     Active Substance: OXYCODONE
     Indication: Pain management
     Route: 065
     Dates: start: 2025
  2. DUPIXENT [Suspect]
     Active Substance: DUPILUMAB
     Indication: Chronic obstructive pulmonary disease
     Dosage: 300 MILLIGRAM, EVERY OTHER WK (STRENGTH 300 MG/2ML; DELIVERED VIA DUPIXENT SINGLE DOSE PRE-FILLED PE
     Route: 058
     Dates: start: 202504
  3. TRELEGY ELLIPTA [Concomitant]
     Active Substance: FLUTICASONE FUROATE\UMECLIDINIUM BROMIDE\VILANTEROL TRIFENATATE
     Indication: Product used for unknown indication
     Route: 065
  4. ALBUTEROL [Concomitant]
     Active Substance: ALBUTEROL
     Indication: Product used for unknown indication
     Route: 065

REACTIONS (9)
  - Hernia [Unknown]
  - Hernia repair [Unknown]
  - Muscular weakness [Unknown]
  - Condition aggravated [Unknown]
  - Back pain [Unknown]
  - Constipation [Unknown]
  - Diarrhoea [Unknown]
  - Dizziness postural [Unknown]
  - Headache [Unknown]

NARRATIVE: CASE EVENT DATE: 20250101
